FAERS Safety Report 8859654 (Version 1)
Quarter: 2012Q4

REPORT INFORMATION
  Report Type: 
  Country: US (occurrence: US)
  Receive Date: 20121025
  Receipt Date: 20121025
  Transmission Date: 20130627
  Serious: Yes (Death, Life-Threatening, Hospitalization)
  Sender: FDA-Public Use
  Company Number: US-BAYER-2012-108409

PATIENT
  Age: 76 Year
  Sex: Male
  Weight: 87.98 kg

DRUGS (13)
  1. ACETYLSALICYLIC ACID (} 100 MG) [Suspect]
     Indication: PRODUCT USED FOR UNKNOWN INDICATION
     Dosage: 325 mg, QD
     Route: 048
     Dates: start: 20120531
  2. SILODOSIN [Suspect]
     Indication: BENIGN PROSTATIC HYPERPLASIA
     Dosage: 8 mg, QD
     Dates: start: 20120621, end: 20120729
  3. LOSARTAN [Suspect]
     Indication: PRODUCT USED FOR UNKNOWN INDICATION
     Dosage: 100 mg, QD
     Route: 048
     Dates: start: 20120531
  4. PREDNISONE [Suspect]
     Indication: PRODUCT USED FOR UNKNOWN INDICATION
     Dosage: 10 mg, QD
     Route: 048
     Dates: start: 20120531
  5. LOVASTATIN [Suspect]
     Indication: PRODUCT USED FOR UNKNOWN INDICATION
     Dosage: 40 mg, BID
     Route: 048
     Dates: start: 20100831
  6. METFORMIN HYDROCHLORIDE [Suspect]
     Indication: PRODUCT USED FOR UNKNOWN INDICATION
     Dosage: 1000 mg, BID
     Route: 048
     Dates: start: 20100831
  7. METOPROLOL [Suspect]
     Indication: PRODUCT USED FOR UNKNOWN INDICATION
     Dosage: 50 mg, BID
     Route: 048
     Dates: start: 20120221
  8. VENTOLIN [Suspect]
     Indication: PRODUCT USED FOR UNKNOWN INDICATION
     Dosage: 2 puffs every 4-6hrs, PRN
     Route: 045
     Dates: start: 20120531
  9. IMURAN [Suspect]
     Indication: PRODUCT USED FOR UNKNOWN INDICATION
     Dosage: 50 mg, QD
     Route: 048
     Dates: start: 20120531
  10. ADVAIR [Suspect]
     Indication: PRODUCT USED FOR UNKNOWN INDICATION
     Dosage: 500-50 mcg, QD
     Route: 045
     Dates: start: 20120531
  11. HUMALOG MIX50/50 [Suspect]
     Indication: PRODUCT USED FOR UNKNOWN INDICATION
     Dosage: 75/25 suspension
     Route: 058
     Dates: start: 20120621
  12. FINASTERIDE [Suspect]
     Indication: PRODUCT USED FOR UNKNOWN INDICATION
     Dosage: 5 mg, QD
     Route: 048
     Dates: start: 20120621
  13. XOPENEX [Suspect]
     Dosage: 1.25 mg/3ml, 1 amp per Neb, 4IW
     Route: 045
     Dates: start: 20120705

REACTIONS (3)
  - Respiratory failure [None]
  - Hypoxia [None]
  - Cardiac arrest [Fatal]
